FAERS Safety Report 5062783-X (Version None)
Quarter: 2006Q3

REPORT INFORMATION
  Report Type: 
  Country: None (occurrence: None)
  Receive Date: 20060724
  Receipt Date: 20060714
  Transmission Date: 20061208
  Serious: Yes (Death)
  Sender: FDA-Public Use
  Company Number: 2006087422

PATIENT
  Age: 50 Year
  Sex: Male

DRUGS (5)
  1. ZELDOX (CAPSULES) (ZIPRASIDONE) [Suspect]
     Indication: DRUG USE FOR UNKNOWN INDICATION
     Dosage: 120 MG (60 MG, 2 IN 1 D), ORAL
     Route: 048
  2. RISPERDAL [Concomitant]
  3. CLORAZEPATE DIPOTASSIUM [Concomitant]
  4. VIAGRA [Concomitant]
  5. LEVITRA [Concomitant]

REACTIONS (1)
  - DEATH [None]
